FAERS Safety Report 24206362 (Version 1)
Quarter: 2024Q3

REPORT INFORMATION
  Report Type: Spontaneous
  Country: US (occurrence: None)
  Receive Date: 20240812
  Receipt Date: 20240812
  Transmission Date: 20241016
  Serious: Yes (Hospitalization)
  Sender: Public
  Company Number: None

PATIENT
  Age: 55 Year
  Sex: Female
  Weight: 81 kg

DRUGS (7)
  1. SERMORELIN [Suspect]
     Active Substance: SERMORELIN
     Indication: Arthralgia
     Dosage: OTHER QUANTITY : 1 INJECTION(S);?FREQUENCY : AT BEDTIME;?OTHER ROUTE : INJECTION ON THE SKIN;?
     Route: 050
     Dates: start: 20240806, end: 20240806
  2. ESTRADIOL TRANSDERMAL SYSTEM [Concomitant]
     Active Substance: ESTRADIOL
  3. progesterone oral [Concomitant]
  4. TESTOSTERONE [Concomitant]
     Active Substance: TESTOSTERONE
  5. Zepbound [Concomitant]
  6. PROBIOTICS NOS [Concomitant]
     Active Substance: PROBIOTICS NOS
  7. MAGNESIUM [Concomitant]

REACTIONS (1)
  - Drug hypersensitivity [None]

NARRATIVE: CASE EVENT DATE: 20240806
